FAERS Safety Report 6408286-9 (Version None)
Quarter: 2009Q4

REPORT INFORMATION
  Report Type: 
  Country: None (occurrence: None)
  Receive Date: 20091021
  Receipt Date: 20091020
  Transmission Date: 20100525
  Serious: Yes (Other)
  Sender: FDA-Public Use
  Company Number: US-PFIZER INC-2009195882

PATIENT
  Sex: Male
  Weight: 79.365 kg

DRUGS (7)
  1. LIPITOR [Suspect]
     Indication: BLOOD CHOLESTEROL INCREASED
     Dosage: 10 MG, 1X/DAY
     Dates: start: 20000101, end: 20080101
  2. VITAMINS [Concomitant]
     Dosage: UNK
  3. ACETYLSALICYLIC ACID [Concomitant]
     Dosage: 81 MG, UNK
  4. FOSAMAX [Concomitant]
  5. PLAVIX [Concomitant]
     Dosage: UNK
     Dates: start: 20010601
  6. DHEA [Concomitant]
  7. MULTI-VITAMINS [Concomitant]

REACTIONS (6)
  - ABASIA [None]
  - DEAFNESS [None]
  - EAR DISORDER [None]
  - MUSCULAR WEAKNESS [None]
  - MYALGIA [None]
  - OSTEOPOROSIS [None]
